FAERS Safety Report 18872916 (Version 1)
Quarter: 2021Q1

REPORT INFORMATION
  Report Type: Spontaneous
  Country: FR (occurrence: FR)
  Receive Date: 20210210
  Receipt Date: 20210210
  Transmission Date: 20210420
  Serious: Yes (Life-Threatening, Hospitalization)
  Sender: FDA-Public Use
  Company Number: NVSC2021FR029903

PATIENT
  Age: 79 Year
  Sex: Female

DRUGS (6)
  1. IRBESARTAN. [Suspect]
     Active Substance: IRBESARTAN
     Indication: WRONG PRODUCT ADMINISTERED
     Dosage: 300 MG (TOTAL)
     Route: 048
     Dates: start: 20210109, end: 20210109
  2. SERESTA [Suspect]
     Active Substance: OXAZEPAM
     Indication: WRONG PRODUCT ADMINISTERED
     Dosage: 1 DF (TOTAL)
     Route: 048
     Dates: start: 20210109, end: 20210109
  3. GABAPENTIN. [Suspect]
     Active Substance: GABAPENTIN
     Indication: WRONG PRODUCT ADMINISTERED
     Dosage: 300 MG (TOTAL)
     Route: 048
     Dates: start: 20210109, end: 20210109
  4. LERCAN [Suspect]
     Active Substance: LERCANIDIPINE
     Indication: WRONG PRODUCT ADMINISTERED
     Dosage: 1 DF (TOTAL) (COMPRIME PELLICULE SECABLE)
     Route: 048
     Dates: start: 20210109, end: 20210109
  5. PROPRANOLOL [Suspect]
     Active Substance: PROPRANOLOL HYDROCHLORIDE
     Indication: WRONG PRODUCT ADMINISTERED
     Dosage: 40 MG, QD
     Route: 048
     Dates: start: 20210109, end: 20210109
  6. MODOPAR [Suspect]
     Active Substance: BENSERAZIDE HYDROCHLORIDE\LEVODOPA
     Indication: WRONG PRODUCT ADMINISTERED
     Dosage: 1 DF (TOTAL)
     Route: 048
     Dates: start: 20210109, end: 20210109

REACTIONS (4)
  - Cardio-respiratory arrest [Recovered/Resolved]
  - Hypotension [Recovered/Resolved]
  - Wrong product administered [Recovered/Resolved]
  - Coma [Recovered/Resolved]

NARRATIVE: CASE EVENT DATE: 20210109
